FAERS Safety Report 9976968 (Version 1)
Quarter: 2014Q1

REPORT INFORMATION
  Report Type: Report from Study
  Country: US (occurrence: US)
  Receive Date: 20140306
  Receipt Date: 20140306
  Transmission Date: 20141002
  Serious: No
  Sender: FDA-Public Use
  Company Number: US-ABBVIE-13P-163-1166890-00

PATIENT
  Age: 54 Year
  Sex: Male

DRUGS (7)
  1. HUMIRA [Suspect]
     Indication: COLITIS ULCERATIVE
     Dates: start: 20130826
  2. NOVALOG-N [Concomitant]
     Indication: TYPE 2 DIABETES MELLITUS
     Dosage: IN EVENING
  3. AMARYL [Concomitant]
     Indication: TYPE 2 DIABETES MELLITUS
     Dosage: IN EVENING
  4. TRAMADOL [Concomitant]
     Indication: ARTHRALGIA
  5. ENALAPRIL [Concomitant]
     Indication: HYPERTENSION
     Dosage: IN MORNING
  6. HYDROCHLOROTHIAZIDE [Concomitant]
     Indication: HYPERTENSION
  7. HYDROCORTISONE [Concomitant]
     Indication: PRODUCT USED FOR UNKNOWN INDICATION
     Dosage: ONE TO TWO TIMES DAILY, HAS BEEN USING ONE AT BEDTIME ONLY

REACTIONS (1)
  - Drug effect decreased [Recovered/Resolved]
